FAERS Safety Report 4265962-4 (Version None)
Quarter: 2004Q1

REPORT INFORMATION
  Report Type: 
  Country: None (occurrence: None)
  Receive Date: 20040106
  Receipt Date: 20031223
  Transmission Date: 20041129
  Serious: Yes (Hospitalization)
  Sender: FDA-Public Use
  Company Number: 2003126462

PATIENT
  Age: 47 Year
  Sex: Female

DRUGS (3)
  1. VIRACEPT [Suspect]
     Indication: ILL-DEFINED DISORDER
     Dosage: 250 MG, ORAL
     Route: 048
  2. TENOFOVIR DISOPROXIL FUMARATE (TENOFOVIR DISOPROXIL FUMARATE) [Suspect]
     Indication: ILL-DEFINED DISORDER
     Dosage: ORAL
     Route: 048
  3. DIDANOSINE (DIDANOSINE) [Suspect]
     Indication: ILL-DEFINED DISORDER
     Dosage: ORAL
     Route: 048

REACTIONS (1)
  - PAROTITIS [None]
